FAERS Safety Report 5328563-2 (Version None)
Quarter: 2007Q2

REPORT INFORMATION
  Report Type: 
  Country: None (occurrence: None)
  Receive Date: 20070517
  Receipt Date: 20070412
  Transmission Date: 20071010
  Serious: Yes (Death)
  Sender: FDA-Public Use
  Company Number: JP-SANOFI-SYNTHELABO-A01200610612

PATIENT
  Age: 81 Year
  Sex: Male
  Weight: 52 kg

DRUGS (5)
  1. LEUCOVORIN CALCIUM [Concomitant]
     Dosage: 300MG/BODY=208.3 MG/M2AS INFUSION ON DAYS 1
     Route: 041
     Dates: start: 20061106, end: 20061106
  2. DEXAMETHASONE SODIUM PHOSPHATE [Concomitant]
     Route: 042
     Dates: start: 20060522, end: 20061106
  3. FLUOROURACIL [Suspect]
     Dosage: 3500 MG/BODY=2430.6 MG/M2 CONTINUOS INFUSION
     Route: 042
     Dates: start: 20061106, end: 20061107
  4. AZASETRON HYDROCHLORIDE [Concomitant]
     Route: 042
     Dates: start: 20060522, end: 20061106
  5. OXALIPLATIN [Suspect]
     Dosage: 125 MG/BODY=86.8 MG/M2 INFUSION D1
     Route: 042
     Dates: start: 20061106, end: 20061106

REACTIONS (3)
  - ACUTE MYOCARDIAL INFARCTION [None]
  - HAEMOGLOBIN DECREASED [None]
  - INTERSTITIAL LUNG DISEASE [None]
